FAERS Safety Report 8431084-1 (Version None)
Quarter: 2012Q2

REPORT INFORMATION
  Report Type: 
  Country: None (occurrence: None)
  Receive Date: 20120612
  Receipt Date: 20120531
  Transmission Date: 20120825
  Serious: Yes (Life-Threatening, Hospitalization)
  Sender: FDA-Public Use
  Company Number: US-TEVA-340890USA

PATIENT
  Sex: Male
  Weight: 77.2 kg

DRUGS (2)
  1. TEMOZOLOMIDE [Suspect]
  2. NUVIGIL [Suspect]
     Indication: FATIGUE
     Route: 048
     Dates: start: 20120516, end: 20120527

REACTIONS (1)
  - SUPRAVENTRICULAR TACHYCARDIA [None]
